FAERS Safety Report 16414878 (Version 1)
Quarter: 2019Q2

REPORT INFORMATION
  Report Type: Spontaneous
  Country: US (occurrence: US)
  Receive Date: 20190611
  Receipt Date: 20190611
  Transmission Date: 20190711
  Serious: Yes (Hospitalization, Other)
  Sender: FDA-Public Use
  Company Number: US-009507513-1906USA001407

PATIENT
  Age: 61 Year
  Sex: Female

DRUGS (1)
  1. KEYTRUDA [Suspect]
     Active Substance: PEMBROLIZUMAB
     Indication: NON-SMALL CELL LUNG CANCER STAGE IV
     Dosage: TWO CYCLES, APPROXIMATELY TWO WEEKS APART

REACTIONS (3)
  - Inappropriate schedule of product administration [Unknown]
  - Myasthenia gravis [Unknown]
  - Myasthenia gravis crisis [Unknown]
